FAERS Safety Report 23038727 (Version 1)
Quarter: 2023Q4

REPORT INFORMATION
  Report Type: Spontaneous
  Country: US (occurrence: US)
  Receive Date: 20231006
  Receipt Date: 20231006
  Transmission Date: 20240110
  Serious: Yes (Hospitalization)
  Sender: FDA-Public Use
  Company Number: US-Vifor (International) Inc.-VIT-2023-07369

PATIENT
  Age: 28 Year
  Sex: Female
  Weight: 94 kg

DRUGS (1)
  1. MIRCERA [Suspect]
     Active Substance: METHOXY POLYETHYLENE GLYCOL-EPOETIN BETA
     Indication: Nephrogenic anaemia
     Dosage: FIRST DOSE
     Route: 040
     Dates: start: 20230927, end: 20230927

REACTIONS (4)
  - Drug hypersensitivity [Unknown]
  - Dyspnoea [Unknown]
  - Chest pain [Unknown]
  - Nausea [Unknown]

NARRATIVE: CASE EVENT DATE: 20230927
